FAERS Safety Report 7869238-5 (Version None)
Quarter: 2011Q4

REPORT INFORMATION
  Report Type: 
  Country: None (occurrence: None)
  Receive Date: 20111021
  Receipt Date: 20111008
  Transmission Date: 20120403
  Serious: Yes (Other)
  Sender: FDA-Public Use
  Company Number: 2011SP047849

PATIENT
  Age: 47 Year
  Sex: Female

DRUGS (3)
  1. PEG-INTRON [Suspect]
     Indication: HEPATITIS C
     Dates: start: 20110813
  2. RIBAVIRIN [Suspect]
     Indication: HEPATITIS C
     Dates: start: 20110813
  3. VICTRELIS [Suspect]
     Indication: HEPATITIS C
     Dates: start: 20110910

REACTIONS (7)
  - MALAISE [None]
  - FEELING ABNORMAL [None]
  - PYREXIA [None]
  - IRRITABILITY [None]
  - OROPHARYNGEAL PAIN [None]
  - WHITE BLOOD CELL COUNT DECREASED [None]
  - INSOMNIA [None]
